FAERS Safety Report 7290201-X (Version None)
Quarter: 2011Q1

REPORT INFORMATION
  Report Type: 
  Country: None (occurrence: None)
  Receive Date: 20110214
  Receipt Date: 20110204
  Transmission Date: 20110831
  Serious: Yes (Hospitalization)
  Sender: FDA-Public Use
  Company Number: PHFR2011GB01078

PATIENT
  Age: 58 Year
  Sex: Female

DRUGS (3)
  1. CARBAMAZEPINE [Suspect]
     Indication: CONVULSION
     Dosage: 200 MG, BID
     Route: 048
     Dates: start: 20101224, end: 20110121
  2. OMEPRAZOLE [Concomitant]
     Dosage: UNK DF, UNK
  3. DEXAMETHASONE [Concomitant]
     Dosage: UNK DF, UNK

REACTIONS (2)
  - NEUTROPHIL COUNT DECREASED [None]
  - NEUTROPENIC SEPSIS [None]
